FAERS Safety Report 6455114-1 (Version None)
Quarter: 2009Q4

REPORT INFORMATION
  Report Type: 
  Country: None (occurrence: None)
  Receive Date: 20091124
  Receipt Date: 20090320
  Transmission Date: 20100525
  Serious: No
  Sender: FDA-Public Use
  Company Number: US-AMGEN-KDL339480

PATIENT
  Sex: Female
  Weight: 49.9 kg

DRUGS (2)
  1. ENBREL [Suspect]
     Indication: RHEUMATOID ARTHRITIS
     Route: 058
     Dates: start: 20081201
  2. ENBREL [Suspect]
     Indication: OSTEOARTHRITIS

REACTIONS (1)
  - ALOPECIA [None]
